FAERS Safety Report 7341599-5 (Version None)
Quarter: 2011Q1

REPORT INFORMATION
  Report Type: 
  Country: None (occurrence: None)
  Receive Date: 20110228
  Receipt Date: 20110211
  Transmission Date: 20110831
  Serious: Yes (Other)
  Sender: FDA-Public Use
  Company Number: IPC201102-000125

PATIENT
  Age: 44 Year
  Sex: Male

DRUGS (4)
  1. GABAPENTIN [Concomitant]
  2. ATORVASTATIN CALCIUM [Concomitant]
  3. IBUPROFEN [Concomitant]
  4. PROPRANOLOL HYDROCHLORIDE [Suspect]
     Indication: HYPERTENSION
     Dosage: 160 MG DAILY, DOSE REDUCED BY 20MG EVERY 3 DAYS UNTIL STOPPED

REACTIONS (1)
  - RAPID EYE MOVEMENTS SLEEP ABNORMAL [None]
